FAERS Safety Report 7680777-2 (Version None)
Quarter: 2011Q3

REPORT INFORMATION
  Report Type: 
  Country: None (occurrence: None)
  Receive Date: 20110812
  Receipt Date: 20110804
  Transmission Date: 20111222
  Serious: Yes (Hospitalization, Other)
  Sender: FDA-Public Use
  Company Number: US-BAYER-2011-005077

PATIENT
  Age: 23 Year
  Sex: Female
  Weight: 49.887 kg

DRUGS (5)
  1. YAZ [Suspect]
     Indication: MIGRAINE
  2. ZYRTEC [Concomitant]
     Dosage: UNK UNK, QD
  3. YASMIN [Suspect]
     Indication: ACNE
     Dosage: UNK
     Dates: start: 20060801, end: 20080801
  4. YASMIN [Suspect]
     Indication: MIGRAINE
  5. YAZ [Suspect]
     Indication: ACNE
     Dosage: UNK
     Dates: start: 20080801, end: 20090501

REACTIONS (5)
  - POST CHOLECYSTECTOMY SYNDROME [None]
  - GALLBLADDER DISORDER [None]
  - PAIN [None]
  - CHOLELITHIASIS [None]
  - EMOTIONAL DISTRESS [None]
